FAERS Safety Report 9099677 (Version 4)
Quarter: 2013Q2

REPORT INFORMATION
  Report Type: Report from Study
  Country: US (occurrence: US)
  Receive Date: 20130214
  Receipt Date: 20130529
  Transmission Date: 20140414
  Serious: Yes (Hospitalization, Other)
  Sender: FDA-Public Use
  Company Number: US-JNJFOC-20130202791

PATIENT
  Age: 69 Year
  Sex: Female
  Weight: 81.65 kg

DRUGS (12)
  1. REMICADE [Suspect]
     Indication: PSORIATIC ARTHROPATHY
     Dosage: DOSE: 2-3 VIALS ONCE EVERY 6-8 WEEKS
     Route: 042
     Dates: start: 20060210, end: 20120319
  2. REMICADE [Suspect]
     Indication: PSORIATIC ARTHROPATHY
     Route: 042
     Dates: start: 20121203, end: 20121203
  3. METHOTREXATE [Suspect]
     Indication: PSORIATIC ARTHROPATHY
     Route: 048
     Dates: start: 20011001, end: 20120320
  4. METHOTREXATE [Suspect]
     Indication: RHEUMATOID ARTHRITIS
     Route: 048
     Dates: start: 20011001, end: 20120320
  5. ATENOLOL [Concomitant]
     Indication: BLOOD PRESSURE
     Route: 048
  6. OMEPRAZOLE [Concomitant]
     Indication: BARRETT^S OESOPHAGUS
     Route: 048
  7. OMEPRAZOLE [Concomitant]
     Indication: GASTROOESOPHAGEAL REFLUX DISEASE
     Route: 048
  8. VITAMIN D [Concomitant]
     Dosage: 1000 ML
     Route: 065
  9. VITAMIN C [Concomitant]
     Dosage: 500
     Route: 065
  10. MIACALCIN [Concomitant]
     Indication: OSTEOPENIA
     Route: 042
  11. LIPITOR [Concomitant]
     Indication: HYPERLIPIDAEMIA
     Route: 048
  12. PRILOSEC [Concomitant]
     Indication: BARRETT^S OESOPHAGUS
     Route: 048

REACTIONS (6)
  - Pancreatic neuroendocrine tumour metastatic [Unknown]
  - Asthenia [Recovering/Resolving]
  - Abasia [Recovering/Resolving]
  - Pancreatitis acute [Recovered/Resolved]
  - Diverticulitis [Unknown]
  - Weight decreased [Recovering/Resolving]
